FAERS Safety Report 5122980-1 (Version None)
Quarter: 2006Q4

REPORT INFORMATION
  Report Type: 
  Country: None (occurrence: None)
  Receive Date: 20061005
  Receipt Date: 20060920
  Transmission Date: 20070319
  Serious: Yes (Death)
  Sender: FDA-Public Use
  Company Number: 2006S1008980

PATIENT
  Age: 87 Year
  Sex: Female

DRUGS (1)
  1. CLOZAPINE [Suspect]
     Dosage: 62.5 MG;HS;PO
     Route: 048
     Dates: start: 20040501, end: 20060810

REACTIONS (1)
  - GRANULOCYTOPENIA [None]
